FAERS Safety Report 4318214-8 (Version None)
Quarter: 2004Q1

REPORT INFORMATION
  Report Type: 
  Country: None (occurrence: None)
  Receive Date: 20040315
  Receipt Date: 20040304
  Transmission Date: 20041129
  Serious: Yes (Hospitalization)
  Sender: FDA-Public Use
  Company Number: HQWYE574204MAR04

PATIENT
  Age: 57 Year
  Sex: Male

DRUGS (2)
  1. CORDARONE [Suspect]
     Indication: ARRHYTHMIA SUPRAVENTRICULAR
     Dosage: CUMULATIVE DOSE 15-20 G FOR 14 DAYS
     Route: 048
     Dates: start: 20040108, end: 20040128
  2. CORDARONE [Suspect]
     Indication: ARRHYTHMIA SUPRAVENTRICULAR
     Dosage: CUMULATIVE DOSE 15-20 G FOR 14 DAYS
     Route: 042
     Dates: start: 20040108, end: 20040128

REACTIONS (1)
  - BLINDNESS [None]
